FAERS Safety Report 8720108 (Version 2)
Quarter: 2012Q4

REPORT INFORMATION
  Report Type: 
  Country: US (occurrence: US)
  Receive Date: 20120813
  Receipt Date: 20120913
  Transmission Date: 20130627
  Serious: No
  Sender: FDA-Public Use
  Company Number: US-PFIZER INC-2012193719

PATIENT
  Age: 25 Year
  Sex: Female
  Weight: 65.76 kg

DRUGS (1)
  1. ADVIL [Suspect]
     Dosage: UNK, once a day
     Route: 048
     Dates: start: 20120807, end: 20120807

REACTIONS (3)
  - Drug administered to patient of inappropriate age [Unknown]
  - Glossodynia [Recovered/Resolved]
  - Throat irritation [Recovered/Resolved]
